FAERS Safety Report 23500557 (Version 2)
Quarter: 2024Q1

REPORT INFORMATION
  Report Type: Spontaneous
  Country: CA (occurrence: CA)
  Receive Date: 20240208
  Receipt Date: 20240212
  Transmission Date: 20240410
  Serious: No
  Sender: FDA-Public Use
  Company Number: CA-CELLTRION INC.-2023CA020827

PATIENT

DRUGS (6)
  1. INFLECTRA [Suspect]
     Active Substance: INFLIXIMAB-DYYB
     Indication: Cerebrovascular accident
     Dosage: 1 DF, DOSAGE INFO: UNKNOWN. HOSPITAL INFUSION
     Route: 042
     Dates: start: 20230301, end: 20230301
  2. INFLECTRA [Suspect]
     Active Substance: INFLIXIMAB-DYYB
     Indication: Migraine
     Dosage: 700 MG, WEEK 0 THEN EVERY 6 WEEKS
     Route: 042
     Dates: start: 202303
  3. INFLECTRA [Suspect]
     Active Substance: INFLIXIMAB-DYYB
     Dosage: 700 MG, WEEK 0 THEN EVERY 6 WEEKS
     Route: 042
     Dates: start: 20231024
  4. INFLECTRA [Suspect]
     Active Substance: INFLIXIMAB-DYYB
     Dosage: 700 MG, WEEK 0 THEN EVERY 6 WEEKS
     Route: 042
     Dates: start: 20231212
  5. INFLECTRA [Suspect]
     Active Substance: INFLIXIMAB-DYYB
     Dosage: 700 MG, WEEK 0 THEN EVERY 6 WEEKS
     Route: 042
     Dates: start: 20240130
  6. ACETAMINOPHEN [Concomitant]
     Active Substance: ACETAMINOPHEN
     Indication: Premedication
     Dosage: UNK
     Dates: start: 20240130, end: 20240130

REACTIONS (5)
  - Epistaxis [Recovered/Resolved]
  - Hypotension [Unknown]
  - Off label use [Unknown]
  - Off label use [Unknown]
  - Intentional product use issue [Unknown]

NARRATIVE: CASE EVENT DATE: 20230301
